FAERS Safety Report 8447548-0 (Version None)
Quarter: 2012Q2

REPORT INFORMATION
  Report Type: 
  Country: None (occurrence: None)
  Receive Date: 20120619
  Receipt Date: 20120614
  Transmission Date: 20120825
  Serious: Yes (Life-Threatening, Hospitalization, Other)
  Sender: FDA-Public Use
  Company Number: US-US-EMD SERONO, INC.-7131117

PATIENT
  Sex: Female
  Weight: 57 kg

DRUGS (2)
  1. REBIF [Suspect]
     Indication: RELAPSING-REMITTING MULTIPLE SCLEROSIS
     Route: 058
     Dates: start: 20120419, end: 20120504
  2. IBUPROFEN [Concomitant]
     Indication: PAIN

REACTIONS (3)
  - MYOCARDIAL INFARCTION [None]
  - FEMORAL ARTERY OCCLUSION [None]
  - PAIN IN EXTREMITY [None]
